FAERS Safety Report 7673100-0 (Version None)
Quarter: 2011Q3

REPORT INFORMATION
  Report Type: 
  Country: None (occurrence: None)
  Receive Date: 20110810
  Receipt Date: 20110802
  Transmission Date: 20111222
  Serious: Yes (Hospitalization)
  Sender: FDA-Public Use
  Company Number: US-BIOGENIDEC-2011BI018773

PATIENT
  Sex: Female

DRUGS (5)
  1. AVONEX [Suspect]
     Route: 030
     Dates: start: 20030916, end: 20080628
  2. AVONEX [Suspect]
     Route: 030
     Dates: start: 20030131
  3. AVONEX [Suspect]
     Indication: MULTIPLE SCLEROSIS
     Route: 030
  4. AVONEX [Suspect]
     Route: 030
     Dates: start: 20080801
  5. STEROIDS (NOS) [Concomitant]

REACTIONS (4)
  - OEDEMA PERIPHERAL [None]
  - SWELLING [None]
  - JAW DISORDER [None]
  - BLOOD PRESSURE DECREASED [None]
